FAERS Safety Report 17026286 (Version 1)
Quarter: 2019Q4

REPORT INFORMATION
  Report Type: Report from Study
  Country: AU (occurrence: AU)
  Receive Date: 20191113
  Receipt Date: 20191113
  Transmission Date: 20200122
  Serious: Yes (Death)
  Sender: FDA-Public Use
  Company Number: AU-BAYER-2019-185979

PATIENT
  Age: 61 Year

DRUGS (1)
  1. STIVARGA [Suspect]
     Active Substance: REGORAFENIB
     Indication: HEPATOCELLULAR CARCINOMA
     Dosage: UNK

REACTIONS (3)
  - Intestinal perforation [Fatal]
  - Abdominal pain [Fatal]
  - Duodenal ulcer perforation [Fatal]

NARRATIVE: CASE EVENT DATE: 20191005
